FAERS Safety Report 23841166 (Version 1)
Quarter: 2024Q2

REPORT INFORMATION
  Report Type: Report from Study
  Country: US (occurrence: None)
  Receive Date: 20240510
  Receipt Date: 20240510
  Transmission Date: 20240716
  Serious: Yes (Other)
  Sender: FDA-Public Use
  Company Number: 2024A106088

PATIENT
  Sex: Male

DRUGS (6)
  1. CALQUENCE [Suspect]
     Active Substance: ACALABRUTINIB
     Indication: Chronic lymphocytic leukaemia
     Route: 048
  2. MPID : 12622(1.01) : METFORMIN [Concomitant]
     Indication: Product used for unknown indication
  3. MPID : 25326(1.01) : METOPROLOL SUCCINATE [Concomitant]
     Indication: Product used for unknown indication
  4. MPID : 61283(1.01) : OLMESARTAN [Concomitant]
     Indication: Product used for unknown indication
  5. VITAMIN D3 [Concomitant]
     Active Substance: CHOLECALCIFEROL
     Indication: Product used for unknown indication
  6. MPID : 2783583(1.01) : ZIRCONIUM OXIDE [Concomitant]
     Indication: Product used for unknown indication

REACTIONS (2)
  - Cataract [Recovering/Resolving]
  - Hyperkalaemia [Unknown]
